FAERS Safety Report 4271461-6 (Version None)
Quarter: 2004Q1

REPORT INFORMATION
  Report Type: 
  Country: None (occurrence: None)
  Receive Date: 20040114
  Receipt Date: 20040114
  Transmission Date: 20041129
  Serious: Yes (Hospitalization)
  Sender: FDA-Public Use
  Company Number: None

PATIENT
  Age: 85 Year
  Sex: Male
  Weight: 89.4 kg

DRUGS (4)
  1. LIDOCAINE AND EPINEPHRINE [Suspect]
     Dosage: ONE DOSE INJECTAB
     Dates: start: 20030814, end: 20030814
  2. LISINOPRIL [Concomitant]
  3. SIMVASTATIN [Concomitant]
  4. TEMAZEPAM [Concomitant]

REACTIONS (2)
  - ARRHYTHMIA [None]
  - HYPERTENSION [None]
